FAERS Safety Report 6412626-4 (Version None)
Quarter: 2009Q4

REPORT INFORMATION
  Report Type: 
  Country: None (occurrence: None)
  Receive Date: 20091023
  Receipt Date: 20091013
  Transmission Date: 20100525
  Serious: Yes (Hospitalization)
  Sender: FDA-Public Use
  Company Number: PHHY2009CN43649

PATIENT
  Age: 29 Year
  Sex: Male
  Weight: 45 kg

DRUGS (2)
  1. SEBIVO [Suspect]
     Indication: HEPATITIS B
     Dosage: 600 MG, QD
     Route: 048
     Dates: start: 20080916, end: 20090929
  2. LICORICE [Concomitant]
     Indication: HEPATITIS B
     Dosage: 50 MG, TID
     Route: 048
     Dates: start: 20090915

REACTIONS (17)
  - ACIDOSIS [None]
  - ALANINE AMINOTRANSFERASE INCREASED [None]
  - BLOOD CREATINE PHOSPHOKINASE INCREASED [None]
  - BLOOD CREATININE INCREASED [None]
  - BLOOD POTASSIUM INCREASED [None]
  - BLOOD UREA INCREASED [None]
  - BLOOD URINE PRESENT [None]
  - FACE OEDEMA [None]
  - FATIGUE [None]
  - GAIT DISTURBANCE [None]
  - MUSCULAR WEAKNESS [None]
  - MYALGIA [None]
  - OEDEMA PERIPHERAL [None]
  - OLIGURIA [None]
  - PAIN IN EXTREMITY [None]
  - PROTEINURIA [None]
  - RHABDOMYOLYSIS [None]
